FAERS Safety Report 8022734-2 (Version None)
Quarter: 2011Q4

REPORT INFORMATION
  Report Type: 
  Country: None (occurrence: None)
  Receive Date: 20111230
  Receipt Date: 20111219
  Transmission Date: 20120403
  Serious: Yes (Hospitalization)
  Sender: FDA-Public Use
  Company Number: DSA_48569_2011

PATIENT
  Age: 30 Year
  Sex: Female

DRUGS (1)
  1. VENLAFAXINE [Suspect]
     Indication: PRODUCT USED FOR UNKNOWN INDICATION
     Dosage: NOT THE PRESCRIBED AMOUNT

REACTIONS (6)
  - BLOOD PRESSURE INCREASED [None]
  - PULMONARY OEDEMA [None]
  - OVERDOSE [None]
  - SUICIDE ATTEMPT [None]
  - STRESS CARDIOMYOPATHY [None]
  - ELECTROCARDIOGRAM T WAVE INVERSION [None]
